FAERS Safety Report 7600084 (Version 3)
Quarter: 2012Q4

REPORT INFORMATION
  Report Type: 
  Country: US (occurrence: US)
  Receive Date: 20100921
  Receipt Date: 20121228
  Transmission Date: 20130627
  Serious: Yes (Other)
  Sender: FDA-Public Use
  Company Number: US-ELI_LILLY_AND_COMPANY-US201009002994

PATIENT
  Sex: Female

DRUGS (8)
  1. HUMATROPE [Suspect]
     Indication: GROWTH HORMONE DEFICIENCY
     Dosage: 0.6 mg, qd
     Dates: start: 2010
  2. HUMATROPE [Suspect]
     Dosage: 0.4 mg, daily (1/D)
     Route: 058
  3. HUMATROPE [Suspect]
     Indication: GROWTH HORMONE DEFICIENCY
     Dosage: 0.4 mg, daily (1/D)
     Route: 058
     Dates: start: 20100912
  4. HUMATROPE [Suspect]
     Dosage: 0.1 mg, daily (1/D)
     Route: 058
     Dates: start: 20100912, end: 20100912
  5. HUMATROPE [Suspect]
     Dosage: 0.35 mg, daily (1/D)
     Route: 058
     Dates: start: 20100913, end: 20100913
  6. SYNTHROID [Concomitant]
     Dosage: 112 ug, UNK
  7. VITAMIN D [Concomitant]
     Dosage: 1000 UNK, unknown
     Route: 042
  8. AMLODIPINE [Concomitant]
     Dosage: 5 mg, qd
     Route: 065

REACTIONS (6)
  - Orbital pseudotumour [Unknown]
  - Secondary adrenocortical insufficiency [Unknown]
  - Weight increased [Unknown]
  - Incorrect dose administered [Recovered/Resolved]
  - Nasopharyngitis [Unknown]
  - Exposure to toxic agent [Unknown]
